FAERS Safety Report 7051527-8 (Version None)
Quarter: 2010Q4

REPORT INFORMATION
  Report Type: 
  Country: None (occurrence: None)
  Receive Date: 20101014
  Receipt Date: 20100929
  Transmission Date: 20110411
  Serious: Yes (Hospitalization, Other)
  Sender: FDA-Public Use
  Company Number: HA10-242-AE

PATIENT
  Age: 63 Year
  Sex: Female
  Weight: 93 kg

DRUGS (7)
  1. NAPROXEN [Suspect]
     Indication: OSTEOARTHRITIS
     Dosage: 1 TABLET, BID, ORAL
     Route: 048
     Dates: start: 20090625, end: 20091218
  2. TANEZUMAB; PLACEBO; CELECOXIB [Suspect]
     Indication: OSTEOARTHRITIS
     Dosage: 5MG/10MG Q8WKS, IV
     Route: 042
     Dates: start: 20090710, end: 20091218
  3. LEVOXYL [Concomitant]
  4. MEDROXYPROGESTERONE ACETATE (PREMPRO) [Concomitant]
  5. CHONDROITIN SULFATE [Concomitant]
  6. GLUCOSAMINE SULFATE (GLUCOSAMIN / CHONDROITIN) [Concomitant]
  7. CALCIUM PLUS [Concomitant]

REACTIONS (2)
  - HIP FRACTURE [None]
  - OSTEONECROSIS [None]
